FAERS Safety Report 4707727-2 (Version None)
Quarter: 2005Q2

REPORT INFORMATION
  Report Type: 
  Country: None (occurrence: None)
  Receive Date: 20050629
  Receipt Date: 20050516
  Transmission Date: 20051028
  Serious: No
  Sender: FDA-Public Use
  Company Number: 05P-163-0300645-00

PATIENT
  Age: 77 Year
  Sex: Female

DRUGS (8)
  1. HUMIRA [Suspect]
     Indication: RHEUMATOID ARTHRITIS
     Dosage: 40 MG, 1 IN 2 WK, SUBCUTANEOUS
     Route: 058
     Dates: start: 20040601, end: 20050512
  2. CALCIUM GLUCONATE [Concomitant]
  3. VERAPAMIL [Concomitant]
  4. LEFLUNOMIDE [Concomitant]
  5. HYDROXYCHLOROQUINE PHOSPHATE [Concomitant]
  6. HYDROCHLOROTHIAZIDE [Concomitant]
  7. TICLABENDAZOLE [Concomitant]
  8. CANESARIAN CILEXETIL [Concomitant]

REACTIONS (2)
  - ECZEMA [None]
  - PSORIASIS [None]
